FAERS Safety Report 12176409 (Version 3)
Quarter: 2016Q2

REPORT INFORMATION
  Report Type: Report from Study
  Country: CZ (occurrence: CZ)
  Receive Date: 20160314
  Receipt Date: 20160419
  Transmission Date: 20160815
  Serious: Yes (Life-Threatening, Hospitalization, Other)
  Sender: FDA-Public Use
  Company Number: CZ-VERTEX PHARMACEUTICALS-2016-001525

PATIENT
  Age: 16 Year
  Sex: Female

DRUGS (19)
  1. ORKAMBI [Suspect]
     Active Substance: IVACAFTOR\LUMACAFTOR
     Indication: CYSTIC FIBROSIS
     Dosage: 400-250 MG, BID
     Route: 048
     Dates: start: 20160106, end: 20160306
  2. ORKAMBI [Suspect]
     Active Substance: IVACAFTOR\LUMACAFTOR
     Dosage: 2 CPS, BID
     Route: 048
     Dates: end: 20160312
  3. VITAMIN E [Concomitant]
     Active Substance: .ALPHA.-TOCOPHEROL
     Indication: PANCREATIC INSUFFICIENCY
     Dosage: 400 MG, QD
     Route: 048
     Dates: start: 1999
  4. URSOFALK [Concomitant]
     Active Substance: URSODIOL
     Indication: PANCREATIC INSUFFICIENCY
     Dosage: 3 CPS, QD
     Route: 048
     Dates: start: 2005
  5. ZYRTEC [Concomitant]
     Active Substance: CETIRIZINE HYDROCHLORIDE
     Indication: ATOPY
     Dosage: UNK
     Route: 048
     Dates: start: 20050127
  6. COMBAIR [Concomitant]
     Indication: BRONCHIAL HYPERREACTIVITY
     Dosage: 1 DF, BID (BEFORE MORNING AND EVENING)
     Route: 055
     Dates: start: 20050701
  7. NASONEX [Concomitant]
     Active Substance: MOMETASONE FUROATE
     Indication: NASAL POLYPS
     Dosage: 4 PUFFS, QD
     Dates: start: 20150325
  8. HELICID [Concomitant]
     Indication: PANCREATIC INSUFFICIENCY
     Dosage: UNK, QD
     Route: 048
     Dates: start: 2005
  9. ACTRAPID [Concomitant]
     Active Substance: INSULIN HUMAN
     Indication: CYSTIC FIBROSIS RELATED DIABETES
     Dosage: 5-6 UNITS (MID-DAY), QW
     Route: 058
     Dates: start: 20150129
  10. CREON [Concomitant]
     Active Substance: PANCRELIPASE AMYLASE\PANCRELIPASE LIPASE\PANCRELIPASE PROTEASE
     Indication: PANCREATIC INSUFFICIENCY
     Dosage: 20 CPS BEFORE MEALS, QD
     Route: 048
     Dates: start: 1999
  11. HYPERTONIC SALINE SOLUTION [Concomitant]
     Active Substance: SODIUM CHLORIDE
     Dosage: 3 ML, BID
     Route: 055
     Dates: start: 2009
  12. LACIDOFIL [Concomitant]
     Active Substance: LACTOBACILLUS ACIDOPHILUS\LACTOBACILLUS RHAMNOSUS
     Indication: PROBIOTIC THERAPY
     Dosage: 1 DF, QD
     Dates: start: 201101
  13. FERRUM [Concomitant]
     Active Substance: FERROUS FUMARATE
     Indication: PANCREATIC INSUFFICIENCY
     Dosage: 1 DF, QD
     Route: 048
     Dates: start: 20120312
  14. SINGULAIR [Concomitant]
     Active Substance: MONTELUKAST SODIUM
     Indication: BRONCHIAL HYPERREACTIVITY
     Dosage: 10 MG, QD
     Dates: start: 201101
  15. MIXTARD HUMAN 70/30 [Concomitant]
     Active Substance: INSULIN HUMAN
     Indication: CYSTIC FIBROSIS RELATED DIABETES
     Dosage: 24 UNITS IN MORNING AND 14 UNITS IN EVENING, DAILY
     Route: 058
     Dates: start: 201203
  16. VITAMIN A [Concomitant]
     Active Substance: VITAMIN A
     Indication: PANCREATIC INSUFFICIENCY
     Dosage: 10 CPS A WEEK
     Dates: start: 1999
  17. VITAMIN D [Concomitant]
     Active Substance: CHOLECALCIFEROL
     Indication: PANCREATIC INSUFFICIENCY
     Dosage: 7 DROPS, BID
     Route: 048
     Dates: start: 1999
  18. PULMOZYME [Concomitant]
     Active Substance: DORNASE ALFA
     Dosage: 1 AMPOULE, QD
     Route: 055
     Dates: start: 20090617
  19. OXYGEN. [Concomitant]
     Active Substance: OXYGEN
     Indication: RESPIRATORY FAILURE
     Dosage: 1-2 L/MIN DURING THE NIGHT, INTERMITTENT DURING THE DAY (AS NEEDED)
     Dates: start: 20151203

REACTIONS (5)
  - Respiratory failure [Recovered/Resolved]
  - Sepsis [Recovered/Resolved]
  - Right ventricular failure [Recovered/Resolved]
  - Cystic fibrosis lung [Recovered/Resolved]
  - Infective pulmonary exacerbation of cystic fibrosis [Recovered/Resolved]

NARRATIVE: CASE EVENT DATE: 20160306
